FAERS Safety Report 23811220 (Version 6)
Quarter: 2024Q3

REPORT INFORMATION
  Report Type: Report from Study
  Country: ES (occurrence: ES)
  Receive Date: 20240502
  Receipt Date: 20240921
  Transmission Date: 20241016
  Serious: Yes (Hospitalization)
  Sender: ABBVIE
  Company Number: ES-ABBVIE-5564718

PATIENT
  Age: 73 Year
  Sex: Female

DRUGS (6)
  1. CARBIDOPA\LEVODOPA [Suspect]
     Active Substance: CARBIDOPA\LEVODOPA
     Indication: Parkinson^s disease
     Dosage: FREQUENCY TEXT: 22
     Route: 050
     Dates: start: 20210722
  2. CARBIDOPA\LEVODOPA [Suspect]
     Active Substance: CARBIDOPA\LEVODOPA
     Dosage: DOSE DECREASE
     Route: 050
     Dates: end: 20240429
  3. CARBIDOPA\LEVODOPA [Suspect]
     Active Substance: CARBIDOPA\LEVODOPA
     Route: 050
     Dates: start: 20240503
  4. Nolotil [Concomitant]
     Indication: Fracture pain
     Dosage: ON DEMAND IF PAIN
     Route: 048
     Dates: start: 202402
  5. CEFUROXIME [Concomitant]
     Active Substance: CEFUROXIME
     Indication: Urinary tract infection
     Route: 048
     Dates: start: 20240406, end: 20240416
  6. Hydroxil [Concomitant]
     Indication: Product used for unknown indication
     Dates: end: 202403

REACTIONS (20)
  - Polyneuropathy [Recovered/Resolved]
  - Urinary tract infection [Recovered/Resolved]
  - Paraesthesia [Not Recovered/Not Resolved]
  - Fall [Recovered/Resolved]
  - Musculoskeletal chest pain [Recovered/Resolved]
  - Urinary tract discomfort [Unknown]
  - Abdominal pain [Not Recovered/Not Resolved]
  - Stoma site erythema [Recovered/Resolved]
  - Pain [Unknown]
  - Constipation [Unknown]
  - Rib fracture [Recovered/Resolved]
  - Cervical spinal stenosis [Recovered/Resolved]
  - Fall [Recovered/Resolved]
  - Chest injury [Not Recovered/Not Resolved]
  - Muscular weakness [Recovering/Resolving]
  - Gait inability [Not Recovered/Not Resolved]
  - Mobility decreased [Unknown]
  - Flank pain [Recovered/Resolved]
  - Hypoaesthesia [Not Recovered/Not Resolved]
  - Face injury [Recovered/Resolved]

NARRATIVE: CASE EVENT DATE: 20231201
